FAERS Safety Report 7607232-X (Version None)
Quarter: 2011Q3

REPORT INFORMATION
  Report Type: 
  Country: None (occurrence: None)
  Receive Date: 20110712
  Receipt Date: 20110712
  Transmission Date: 20111222
  Serious: Yes (Hospitalization)
  Sender: FDA-Public Use
  Company Number: None

PATIENT
  Age: 50 Year
  Sex: Male
  Weight: 99.2 kg

DRUGS (1)
  1. CISPLATIN [Suspect]
     Dosage: 119 MG OTHER IV
     Route: 042
     Dates: start: 20110411, end: 20110502

REACTIONS (5)
  - DIARRHOEA [None]
  - NAUSEA [None]
  - NEUTROPENIA [None]
  - VOMITING [None]
  - FATIGUE [None]
